FAERS Safety Report 24845438 (Version 1)
Quarter: 2025Q1

REPORT INFORMATION
  Report Type: Spontaneous
  Country: US (occurrence: None)
  Receive Date: 20250115
  Receipt Date: 20250115
  Transmission Date: 20250409
  Serious: Yes (Hospitalization)
  Sender: FDA-CTU
  Company Number: None

PATIENT
  Sex: Male

DRUGS (11)
  1. CREON [Suspect]
     Active Substance: PANCRELIPASE AMYLASE\PANCRELIPASE LIPASE\PANCRELIPASE PROTEASE
     Indication: Cystic fibrosis
     Dosage: OTHER QUANTITY : TAKE 8 CAPSULES BY MOUTH;?FREQUENCY : 3 TIMES A DAY;?
     Route: 048
     Dates: start: 20231101
  2. ADVAIR HFA AER [Concomitant]
  3. ALBUTEROL AER HFA [Concomitant]
  4. ALBUTEROL SULFATE [Suspect]
     Active Substance: ALBUTEROL SULFATE
  5. AZITHROMYCIN [Concomitant]
     Active Substance: AZITHROMYCIN
  6. BACTRIM [Concomitant]
     Active Substance: SULFAMETHOXAZOLE\TRIMETHOPRIM
  7. BUDESONIDE\FORMOTEROL FUMARATE [Concomitant]
     Active Substance: BUDESONIDE\FORMOTEROL FUMARATE
  8. CETIRIZINE HCL [Concomitant]
     Active Substance: CETIRIZINE HYDROCHLORIDE
  9. CREON [Concomitant]
     Active Substance: PANCRELIPASE AMYLASE\PANCRELIPASE LIPASE\PANCRELIPASE PROTEASE
  10. FAMOTIDINE [Concomitant]
     Active Substance: FAMOTIDINE
  11. MVW D5000 [Concomitant]

REACTIONS (2)
  - Pulmonary congestion [None]
  - Laboratory test abnormal [None]
